FAERS Safety Report 4567006-3 (Version None)
Quarter: 2005Q1

REPORT INFORMATION
  Report Type: 
  Country: None (occurrence: None)
  Receive Date: 20050201
  Receipt Date: 20040322
  Transmission Date: 20050727
  Serious: Yes (Other)
  Sender: FDA-Public Use
  Company Number: US-BRISTOL-MYERS SQUIBB COMPANY-12540852

PATIENT
  Age: 31 Year
  Sex: Male

DRUGS (8)
  1. STADOL [Suspect]
  2. AMBIEN [Concomitant]
  3. VIOXX [Concomitant]
  4. WELLBUTRIN [Concomitant]
  5. ACIPHEX [Concomitant]
  6. ALLEGRA [Concomitant]
  7. NEURONTIN [Concomitant]
  8. ELAVIL [Concomitant]

REACTIONS (1)
  - DEPENDENCE [None]
